FAERS Safety Report 13861104 (Version 1)
Quarter: 2017Q3

REPORT INFORMATION
  Report Type: Spontaneous
  Country: BG (occurrence: BG)
  Receive Date: 20170811
  Receipt Date: 20170811
  Transmission Date: 20171127
  Serious: Yes (Hospitalization)
  Sender: FDA-Public Use
  Company Number: BG-PFIZER INC-2017348265

PATIENT
  Age: 65 Year
  Sex: Female

DRUGS (1)
  1. SUTENT [Suspect]
     Active Substance: SUNITINIB MALATE
     Indication: RENAL CANCER
     Dosage: 37.5 MG, UNK

REACTIONS (2)
  - Pericardial effusion [Unknown]
  - Pericarditis [Unknown]

NARRATIVE: CASE EVENT DATE: 201708
